FAERS Safety Report 4509764-X (Version None)
Quarter: 2004Q4

REPORT INFORMATION
  Report Type: 
  Country: None (occurrence: None)
  Receive Date: 20041124
  Receipt Date: 20040113
  Transmission Date: 20050328
  Serious: No
  Sender: FDA-Public Use
  Company Number: US-BRISTOL-MYERS SQUIBB COMPANY-12477519

PATIENT
  Age: 80 Year
  Sex: Female
  Weight: 88 kg

DRUGS (6)
  1. AVALIDE [Suspect]
     Indication: HYPERTENSION
     Dosage: 150MG/12.5MG TABLETS
     Route: 048
     Dates: start: 20040109
  2. HYDROCHLOROTHIAZIDE [Concomitant]
  3. CELEBREX [Concomitant]
  4. VITAMIN C [Concomitant]
  5. MICRO-K [Concomitant]
  6. CITRACAL [Concomitant]

REACTIONS (3)
  - ALOPECIA [None]
  - ASTHENIA [None]
  - MUSCLE SPASMS [None]
